FAERS Safety Report 23531217 (Version 1)
Quarter: 2024Q1

REPORT INFORMATION
  Report Type: Spontaneous
  Country: US (occurrence: None)
  Receive Date: 20240215
  Receipt Date: 20240215
  Transmission Date: 20240409
  Serious: Yes (Hospitalization)
  Sender: FDA-Public Use
  Company Number: None

PATIENT
  Age: 65 Year
  Sex: Female

DRUGS (1)
  1. AMBRISENTAN [Suspect]
     Active Substance: AMBRISENTAN
     Indication: Pulmonary hypertension
     Dosage: FREQUENCY : DAILY;?
     Route: 048
     Dates: start: 20230310, end: 20230313

REACTIONS (6)
  - Hypoxia [None]
  - Hypotension [None]
  - Acute kidney injury [None]
  - Therapy cessation [None]
  - Pulmonary oedema [None]
  - Anxiety [None]

NARRATIVE: CASE EVENT DATE: 20230314
